FAERS Safety Report 4893246-X (Version None)
Quarter: 2006Q1

REPORT INFORMATION
  Report Type: 
  Country: None (occurrence: None)
  Receive Date: 20060124
  Receipt Date: 20051222
  Transmission Date: 20060701
  Serious: Yes (Hospitalization)
  Sender: FDA-Public Use
  Company Number: 2005-136171-NL

PATIENT
  Age: 83 Year
  Sex: Male

DRUGS (5)
  1. MIRTAZAPINE [Suspect]
     Dosage: 15 MG, ORAL
     Route: 048
     Dates: start: 20051123, end: 20051126
  2. BROMAZEPAM [Concomitant]
  3. LEVOTHYROXINE SODIUM [Concomitant]
  4. VASOBRAL [Concomitant]
  5. ALFUZOSIN HYDROCHLORIDE [Concomitant]

REACTIONS (1)
  - TREMOR [None]
